FAERS Safety Report 4664083-6 (Version None)
Quarter: 2005Q2

REPORT INFORMATION
  Report Type: 
  Country: None (occurrence: None)
  Receive Date: 20050516
  Receipt Date: 20050513
  Transmission Date: 20051028
  Serious: Yes (Other)
  Sender: FDA-Public Use
  Company Number: 2005-04-0060

PATIENT
  Age: 25 Year
  Sex: Female
  Weight: 58.9676 kg

DRUGS (3)
  1. CLARITIN-D [Suspect]
     Indication: PHARYNGOLARYNGEAL PAIN
     Dosage: ONCE ORAL
     Route: 048
     Dates: start: 20050330, end: 20050330
  2. CLARITIN-D [Suspect]
     Indication: POSTNASAL DRIP
     Dosage: ONCE ORAL
     Route: 048
     Dates: start: 20050330, end: 20050330
  3. CLARITIN-D [Suspect]
     Indication: PRURITUS
     Dosage: ONCE ORAL
     Route: 048
     Dates: start: 20050330, end: 20050330

REACTIONS (6)
  - ANOREXIA [None]
  - DIZZINESS [None]
  - INSOMNIA [None]
  - JOINT INJURY [None]
  - LOSS OF CONSCIOUSNESS [None]
  - NAUSEA [None]
